FAERS Safety Report 5206675-1 (Version None)
Quarter: 2006Q4

REPORT INFORMATION
  Report Type: 
  Country: None (occurrence: None)
  Receive Date: 20061026
  Receipt Date: 20060921
  Transmission Date: 20070319
  Serious: Yes (Other)
  Sender: FDA-Public Use
  Company Number: 2006113977

PATIENT
  Age: 37 Year
  Sex: Female

DRUGS (5)
  1. LYRICA [Suspect]
     Indication: NEURALGIA
     Dosage: 200 MG (100 MG, 2 IN 1 D)
     Dates: start: 20060601
  2. TOPAMAX [Concomitant]
  3. ZOLOFT [Concomitant]
  4. TIZANIDINE HCL [Concomitant]
  5. FLEXERIL [Concomitant]

REACTIONS (4)
  - DISTURBANCE IN ATTENTION [None]
  - FEELING ABNORMAL [None]
  - PAIN [None]
  - WEIGHT INCREASED [None]
